FAERS Safety Report 9656073 (Version 1)
Quarter: 2013Q4

REPORT INFORMATION
  Report Type: Spontaneous
  Country: US (occurrence: None)
  Receive Date: 20131029
  Receipt Date: 20131029
  Transmission Date: 20140711
  Serious: Yes (Life-Threatening, Hospitalization, Disabling)
  Sender: FDA-Public Use
  Company Number: None

PATIENT
  Age: 11 Year
  Sex: Female
  Weight: 40.37 kg

DRUGS (1)
  1. DAYTRANA [Suspect]
     Indication: ATTENTION DEFICIT/HYPERACTIVITY DISORDER
     Dosage: 1 PATCH ONCE DAILY APPLIED AS MEDICATED PATCH TO SKIN
     Dates: start: 20130907, end: 20130909

REACTIONS (4)
  - Chest discomfort [None]
  - Dyspnoea [None]
  - Heart rate abnormal [None]
  - Atrioventricular block second degree [None]
